FAERS Safety Report 16973374 (Version 2)
Quarter: 2020Q1

REPORT INFORMATION
  Report Type: Spontaneous
  Country: CA (occurrence: CA)
  Receive Date: 20191030
  Receipt Date: 20200130
  Transmission Date: 20200409
  Serious: Yes (Other)
  Sender: FDA-Public Use
  Company Number: CA-AUROBINDO-AUR-APL-2019-068845

PATIENT
  Age: 69 Year
  Sex: Male

DRUGS (6)
  1. SIMVASTATIN. [Concomitant]
     Active Substance: SIMVASTATIN
     Indication: PRODUCT USED FOR UNKNOWN INDICATION
     Dosage: 20 MILLIGRAM, ONCE A DAY
     Route: 065
  2. SANDOSTATIN [Suspect]
     Active Substance: OCTREOTIDE ACETATE
     Indication: CARCINOID TUMOUR
     Dosage: 20 MILLIGRAM, 1 EVERY 1 MONTH
     Route: 030
  3. METFORMIN [Suspect]
     Active Substance: METFORMIN HYDROCHLORIDE
     Indication: PRODUCT USED FOR UNKNOWN INDICATION
     Dosage: UNK
     Route: 065
  4. VALSARTAN. [Suspect]
     Active Substance: VALSARTAN
     Indication: PRODUCT USED FOR UNKNOWN INDICATION
     Dosage: 40 MILLIGRAM, ONCE A DAY
     Route: 065
  5. SANDOSTATIN [Suspect]
     Active Substance: OCTREOTIDE ACETATE
     Dosage: 30 MILLIGRAM, 1 EVERY 1 MONTH
     Route: 030
  6. SANDOSTATIN [Suspect]
     Active Substance: OCTREOTIDE ACETATE
     Dosage: 20 MILLIGRAM
     Route: 030

REACTIONS (15)
  - Malignant neoplasm progression [Recovering/Resolving]
  - Needle issue [Recovering/Resolving]
  - Blood pressure increased [Recovering/Resolving]
  - Vomiting [Recovering/Resolving]
  - Nephrolithiasis [Recovering/Resolving]
  - Blood pressure diastolic decreased [Recovering/Resolving]
  - Diarrhoea [Recovering/Resolving]
  - Inappropriate schedule of product administration [Recovering/Resolving]
  - Nausea [Recovering/Resolving]
  - Blood glucose increased [Recovering/Resolving]
  - Body temperature decreased [Recovering/Resolving]
  - Heart rate decreased [Recovering/Resolving]
  - Procedural pain [Recovering/Resolving]
  - Blood pressure systolic increased [Recovering/Resolving]
  - Food poisoning [Recovering/Resolving]
